FAERS Safety Report 8208267-9 (Version None)
Quarter: 2012Q1

REPORT INFORMATION
  Report Type: 
  Country: None (occurrence: None)
  Receive Date: 20120314
  Receipt Date: 20120309
  Transmission Date: 20120608
  Serious: Yes (Hospitalization, Disabling, Other)
  Sender: FDA-Public Use
  Company Number: PHEH2012US004569

PATIENT
  Sex: Female
  Weight: 96.4 kg

DRUGS (3)
  1. GILENYA [Suspect]
     Indication: RELAPSING-REMITTING MULTIPLE SCLEROSIS
     Dosage: 0.5 MG, QD
     Route: 048
     Dates: start: 20110701, end: 20120214
  2. VITAMIN D [Concomitant]
     Dosage: 1000 IU, UNK
  3. CALCIUM [Concomitant]

REACTIONS (2)
  - VIITH NERVE PARALYSIS [None]
  - LYMPHOCYTE COUNT DECREASED [None]
